FAERS Safety Report 5104625-X (Version None)
Quarter: 2006Q3

REPORT INFORMATION
  Report Type: 
  Country: None (occurrence: None)
  Receive Date: 20060731
  Receipt Date: 20050707
  Transmission Date: 20061208
  Serious: Yes (Other)
  Sender: FDA-Public Use
  Company Number: US-JNJFOC-20050701668

PATIENT
  Age: 54 Year
  Sex: Female

DRUGS (1)
  1. RISPERDAL CONSTA [Suspect]
     Indication: DRUG USE FOR UNKNOWN INDICATION
     Dosage: 37.5 MG, INTRA-MUSCULAR
     Route: 030

REACTIONS (1)
  - CEREBROVASCULAR ACCIDENT [None]
